FAERS Safety Report 20861653 (Version 1)
Quarter: 2022Q2

REPORT INFORMATION
  Report Type: Spontaneous
  Country: US (occurrence: US)
  Receive Date: 20220523
  Receipt Date: 20220523
  Transmission Date: 20220721
  Serious: Yes (Other)
  Sender: FDA-Public Use
  Company Number: US-INCYTE CORPORATION-2022IN004852

PATIENT

DRUGS (1)
  1. JAKAFI [Suspect]
     Active Substance: RUXOLITINIB
     Indication: Myelofibrosis
     Dosage: UNK
     Route: 065
     Dates: start: 202204

REACTIONS (4)
  - Pneumonia pseudomonal [Unknown]
  - Depression [Unknown]
  - Anxiety [Unknown]
  - Affect lability [Unknown]

NARRATIVE: CASE EVENT DATE: 20220401
